FAERS Safety Report 11659565 (Version 1)
Quarter: 2015Q4

REPORT INFORMATION
  Report Type: Spontaneous
  Country: AT (occurrence: AT)
  Receive Date: 20151026
  Receipt Date: 20151026
  Transmission Date: 20160304
  Serious: Yes (Other)
  Sender: FDA-Public Use
  Company Number: AT-WATSON-2015-19746

PATIENT
  Age: 24 Year
  Sex: Male
  Weight: 100.5 kg

DRUGS (7)
  1. CLOMIPRAMINE (UNKNOWN) [Suspect]
     Active Substance: CLOMIPRAMINE
     Indication: BIPOLAR I DISORDER
     Dosage: 250 MG, DAILY
     Route: 065
  2. CLOMIPRAMINE (UNKNOWN) [Suspect]
     Active Substance: CLOMIPRAMINE
     Dosage: UNK
     Route: 042
  3. LITHIUM. [Suspect]
     Active Substance: LITHIUM
     Dosage: UNK
     Route: 065
  4. CLOZAPINE (UNKNOWN) [Suspect]
     Active Substance: CLOZAPINE
     Indication: BIPOLAR I DISORDER
     Dosage: 400 MG, DAILY
     Route: 065
  5. LITHIUM. [Suspect]
     Active Substance: LITHIUM
     Indication: BIPOLAR I DISORDER
     Dosage: 1125 MG, DAILY
     Route: 065
  6. DIAZEPAM. [Concomitant]
     Active Substance: DIAZEPAM
     Indication: BIPOLAR I DISORDER
     Dosage: UNK
     Route: 042
  7. CLOZAPINE (UNKNOWN) [Suspect]
     Active Substance: CLOZAPINE
     Dosage: INCREASED TO 400 MG/DAY WITHIN 4 WEEKS
     Route: 065

REACTIONS (2)
  - Off label use [Not Recovered/Not Resolved]
  - Weight increased [Recovered/Resolved]
